FAERS Safety Report 5097330-X (Version None)
Quarter: 2006Q3

REPORT INFORMATION
  Report Type: 
  Country: None (occurrence: None)
  Receive Date: 20060906
  Receipt Date: 20060824
  Transmission Date: 20061208
  Serious: Yes (Hospitalization)
  Sender: FDA-Public Use
  Company Number: 20060802936(0)

PATIENT
  Age: 62 Year
  Sex: Male

DRUGS (10)
  1. LAMIVUDINE [Suspect]
     Indication: HIV INFECTION
     Dosage: 150MG TWICE PER DAY
     Route: 048
     Dates: start: 20020913
  2. DARUNAVIR [Suspect]
     Indication: HIV INFECTION
     Dosage: 600MG TWICE PER DAY
     Route: 048
     Dates: start: 20050426, end: 20060803
  3. RITONAVIR [Suspect]
     Indication: HIV INFECTION
     Dosage: 100MG TWICE PER DAY
     Route: 048
     Dates: start: 20050426
  4. TENOFOVIR [Suspect]
     Indication: HIV INFECTION
     Dosage: 300MG PER DAY
     Route: 048
     Dates: start: 20021213
  5. ACETYLSALICYLIC ACID [Concomitant]
  6. SULFAMETHOXAZOLE + TRIMETHOPRIM [Concomitant]
  7. GABAPENTIN [Concomitant]
  8. AZITHROMYCIN [Concomitant]
  9. LOPERAMIDE [Concomitant]
  10. DIPYRONE INJ [Concomitant]

REACTIONS (9)
  - ASTHENIA [None]
  - DEHYDRATION [None]
  - DYSPNOEA [None]
  - GASTROENTERITIS CRYPTOSPORIDIAL [None]
  - LACTIC ACIDOSIS [None]
  - NOSOCOMIAL INFECTION [None]
  - PNEUMONIA [None]
  - PYREXIA [None]
  - URINARY TRACT INFECTION [None]
